FAERS Safety Report 21706153 (Version 1)
Quarter: 2022Q4

REPORT INFORMATION
  Report Type: Spontaneous
  Country: US (occurrence: None)
  Receive Date: 20221208
  Receipt Date: 20221208
  Transmission Date: 20230112
  Serious: No
  Sender: FDA-Public Use
  Company Number: None

PATIENT
  Age: 32 Year
  Sex: Male
  Weight: 126 kg

DRUGS (3)
  1. INFLECTRA [Suspect]
     Active Substance: INFLIXIMAB-DYYB
     Indication: Psoriasis
     Route: 042
  2. DIPHENHYDRAMINE [Concomitant]
  3. ACETAMINOPHEN [Concomitant]

REACTIONS (5)
  - Infusion related reaction [None]
  - Pruritus [None]
  - Anxiety [None]
  - Vital functions abnormal [None]
  - Infusion related hypersensitivity reaction [None]

NARRATIVE: CASE EVENT DATE: 20221202
